FAERS Safety Report 9934296 (Version 2)
Quarter: 2014Q1

REPORT INFORMATION
  Report Type: Spontaneous
  Country: CH (occurrence: CH)
  Receive Date: 20140228
  Receipt Date: 20140304
  Transmission Date: 20141002
  Serious: Yes (Other)
  Sender: FDA-Public Use
  Company Number: PHHY2014CH022712

PATIENT
  Sex: Female

DRUGS (3)
  1. MIACALCIC [Suspect]
     Indication: COMPLEX REGIONAL PAIN SYNDROME
     Dosage: 100 UKN, 1 PUFF IN THE MORNING AND 1 PUFF IN THE EVENING
     Dates: start: 201402
  2. CORTISON [Concomitant]
     Indication: JOINT INJURY
     Dosage: UNK UKN, UNK
  3. HOMEOPATHIC PREPARATIONS [Concomitant]
     Dosage: UNK UKN, UNK

REACTIONS (6)
  - Syncope [Unknown]
  - Sleep disorder [Unknown]
  - Nightmare [Unknown]
  - Memory impairment [Unknown]
  - Headache [Recovered/Resolved]
  - Dizziness [Not Recovered/Not Resolved]
